FAERS Safety Report 8314668-0 (Version None)
Quarter: 2012Q2

REPORT INFORMATION
  Report Type: 
  Country: None (occurrence: None)
  Receive Date: 20120426
  Receipt Date: 20120416
  Transmission Date: 20120825
  Serious: Yes (Hospitalization)
  Sender: FDA-Public Use
  Company Number: BE-ELI_LILLY_AND_COMPANY-BE201202006912

PATIENT
  Age: 36 Year
  Sex: Male

DRUGS (2)
  1. OLANZAPINE [Suspect]
     Indication: SCHIZOPHRENIA
     Dosage: 405 MG, EVERY FOUR WEEKS
     Route: 030
     Dates: start: 20100101
  2. DIAZEPAM [Concomitant]

REACTIONS (8)
  - LOSS OF CONSCIOUSNESS [None]
  - AMNESIA [None]
  - CONFUSIONAL STATE [None]
  - SEDATION [None]
  - DIZZINESS [None]
  - HYPOTENSION [None]
  - ASTHENIA [None]
  - DISORIENTATION [None]
